FAERS Safety Report 4629508-0 (Version None)
Quarter: 2005Q2

REPORT INFORMATION
  Report Type: 
  Country: None (occurrence: None)
  Receive Date: 20050405
  Receipt Date: 20050324
  Transmission Date: 20051028
  Serious: Yes (Hospitalization)
  Sender: FDA-Public Use
  Company Number: 213369

PATIENT
  Age: 63 Year
  Sex: Female

DRUGS (7)
  1. AVASTIN [Suspect]
     Indication: NEUROENDOCRINE CARCINOMA
     Dosage: 5 MG/KG, DAYS 1 + 15, INTRAVENOUS
     Route: 042
     Dates: start: 20041130, end: 20050308
  2. TEMOZOLOMIDE (TEMOZOLOMIDE) [Suspect]
     Indication: NEUROENDOCRINE CARCINOMA
     Dosage: 150 MG/M2, QD, ORAL
     Route: 048
     Dates: start: 20041130, end: 20050314
  3. ASPIRIN [Concomitant]
  4. ATIVAN [Concomitant]
  5. DECADRON [Concomitant]
  6. PRILOSEC [Concomitant]
  7. TORADOL [Concomitant]

REACTIONS (1)
  - DEHYDRATION [None]
